FAERS Safety Report 12807187 (Version 1)
Quarter: 2016Q4

REPORT INFORMATION
  Report Type: Spontaneous
  Country: US (occurrence: US)
  Receive Date: 20161003
  Receipt Date: 20161003
  Transmission Date: 20170207
  Serious: No
  Sender: FDA-Public Use
  Company Number: None

PATIENT
  Age: 51 Year
  Sex: Female
  Weight: 99 kg

DRUGS (1)
  1. LEVALBUTEROL INHALALATION SOLUTI [Suspect]
     Active Substance: LEVALBUTEROL
     Indication: ASTHMA
     Dosage: ?          QUANTITY:3 INHALATION(S);?
     Route: 055

REACTIONS (7)
  - Oropharyngeal pain [None]
  - Product quality issue [None]
  - Cough [None]
  - Respiratory disorder [None]
  - Pulmonary function test decreased [None]
  - Bronchospasm [None]
  - Dyspnoea [None]

NARRATIVE: CASE EVENT DATE: 20160929
